FAERS Safety Report 26047578 (Version 1)
Quarter: 2025Q4

REPORT INFORMATION
  Report Type: Spontaneous
  Country: US (occurrence: None)
  Receive Date: 20251114
  Receipt Date: 20251114
  Transmission Date: 20260118
  Serious: Yes (Other)
  Sender: FDA-CTU
  Company Number: None

PATIENT
  Age: 22 Year
  Sex: Female
  Weight: 47 kg

DRUGS (1)
  1. BLINCYTO [Suspect]
     Active Substance: BLINATUMOMAB
     Dosage: 28 UG MICROGRAM(S) DAILY INTRAVENOUS DRIP
     Route: 041

REACTIONS (7)
  - Nervousness [None]
  - Tachycardia [None]
  - Wheezing [None]
  - Urticaria [None]
  - Rash [None]
  - Dyspnoea [None]
  - Lacrimation increased [None]

NARRATIVE: CASE EVENT DATE: 20251111
